FAERS Safety Report 5290690-6 (Version None)
Quarter: 2007Q2

REPORT INFORMATION
  Report Type: 
  Country: None (occurrence: None)
  Receive Date: 20070405
  Receipt Date: 20070405
  Transmission Date: 20071010
  Serious: Yes (Life-Threatening, Hospitalization)
  Sender: FDA-Public Use
  Company Number: None

PATIENT
  Age: 73 Year
  Sex: Male

DRUGS (10)
  1. LANTUS [Suspect]
     Indication: DIABETES MELLITUS INSULIN-DEPENDENT
     Dosage: 12 UNITS SQ QHS
     Route: 058
  2. ATENOLOL [Concomitant]
  3. DOCUSATE [Concomitant]
  4. ISOSORBIDE DINITRATE [Concomitant]
  5. ATORVASTATIN CALCIUM [Concomitant]
  6. PHOSLO [Concomitant]
  7. NEPHROCAPS [Concomitant]
  8. WARFARIN SODIUM [Concomitant]
  9. LATANOPROST [Concomitant]
  10. BRAMONIDINE [Concomitant]

REACTIONS (2)
  - BLOOD GLUCOSE DECREASED [None]
  - INADEQUATE DIET [None]
